FAERS Safety Report 9184507 (Version 1)
Quarter: 2012Q4

REPORT INFORMATION
  Report Type: 
  Country: US (occurrence: US)
  Receive Date: 20121101
  Receipt Date: 20121101
  Transmission Date: 20130627
  Serious: No
  Sender: FDA-Public Use
  Company Number: US-PFIZER INC-2012272086

PATIENT

DRUGS (2)
  1. ZOLOFT [Suspect]
     Dosage: 50 mg, UNK
  2. ZOLOFT [Suspect]
     Dosage: 200 mg, UNK

REACTIONS (5)
  - Vision blurred [Unknown]
  - Pollakiuria [Unknown]
  - Formication [Unknown]
  - Anxiety [Unknown]
  - Withdrawal syndrome [Unknown]
